FAERS Safety Report 9421706 (Version 1)
Quarter: 2013Q3

REPORT INFORMATION
  Report Type: Spontaneous
  Country: US (occurrence: US)
  Receive Date: 20130726
  Receipt Date: 20130726
  Transmission Date: 20140515
  Serious: No
  Sender: FDA-Public Use
  Company Number: US-009507513-1307USA009712

PATIENT
  Age: 36 Year
  Sex: Female

DRUGS (1)
  1. NUVARING [Suspect]
     Indication: CONTRACEPTION
     Dosage: 1 DF, IN FOR THREE WEEKS/ OUT FOR ONE WEEK
     Route: 067
     Dates: start: 201210

REACTIONS (3)
  - Device expulsion [Recovered/Resolved]
  - Product quality issue [Unknown]
  - No adverse event [Unknown]
